FAERS Safety Report 8604562-X (Version None)
Quarter: 2012Q3

REPORT INFORMATION
  Report Type: 
  Country: None (occurrence: None)
  Receive Date: 20120820
  Receipt Date: 20120809
  Transmission Date: 20120928
  Serious: Yes (Other)
  Sender: FDA-Public Use
  Company Number: US-BAYER-2012-062523

PATIENT
  Age: 58 Year
  Sex: Male

DRUGS (1)
  1. NEXAVAR [Suspect]
     Indication: HEPATIC NEOPLASM MALIGNANT
     Dosage: 400 MG, BID
     Dates: start: 20120601

REACTIONS (16)
  - GASTROOESOPHAGEAL REFLUX DISEASE [None]
  - MUSCULOSKELETAL STIFFNESS [None]
  - VOMITING [None]
  - ASTHENIA [None]
  - NAUSEA [None]
  - MUSCLE SPASMS [None]
  - BACK PAIN [None]
  - DECREASED APPETITE [None]
  - GALLBLADDER DISORDER [None]
  - DRY SKIN [None]
  - NECK PAIN [None]
  - FATIGUE [None]
  - WEIGHT DECREASED [None]
  - ANXIETY [None]
  - INSOMNIA [None]
  - BLOOD GLUCOSE FLUCTUATION [None]
